FAERS Safety Report 5673234-6 (Version None)
Quarter: 2008Q1

REPORT INFORMATION
  Report Type: 
  Country: None (occurrence: None)
  Receive Date: 20080319
  Receipt Date: 20080312
  Transmission Date: 20080703
  Serious: Yes (Death)
  Sender: FDA-Public Use
  Company Number: MX-ELI_LILLY_AND_COMPANY-MX200803002787

PATIENT
  Age: 46 Year
  Sex: Female

DRUGS (1)
  1. GEMZAR [Suspect]
     Dosage: 850 MG/M2, UNKNOWN
     Route: 065

REACTIONS (1)
  - SEPTIC SHOCK [None]
